FAERS Safety Report 5996659-8 (Version None)
Quarter: 2008Q4

REPORT INFORMATION
  Report Type: 
  Country: None (occurrence: None)
  Receive Date: 20081212
  Receipt Date: 20081204
  Transmission Date: 20090506
  Serious: Yes (Other)
  Sender: FDA-Public Use
  Company Number: GB-MERCK-0812GBR00027

PATIENT
  Age: 64 Year
  Sex: Female
  Weight: 71 kg

DRUGS (6)
  1. ZETIA [Suspect]
     Indication: BLOOD CHOLESTEROL INCREASED
     Route: 048
     Dates: start: 20080923, end: 20080928
  2. ZETIA [Suspect]
     Route: 065
     Dates: start: 20081006, end: 20081007
  3. BEZAFIBRATE [Suspect]
     Indication: BLOOD CHOLESTEROL INCREASED
     Route: 048
     Dates: start: 20071018
  4. AMLODIPINE [Concomitant]
     Route: 048
  5. DOTHIEPIN HYDROCHLORIDE [Concomitant]
     Route: 048
  6. NITRAZEPAM [Concomitant]
     Route: 048

REACTIONS (3)
  - ANXIETY [None]
  - DRUG INTERACTION [None]
  - PALPITATIONS [None]
